FAERS Safety Report 5003872-5 (Version None)
Quarter: 2006Q2

REPORT INFORMATION
  Report Type: 
  Country: None (occurrence: None)
  Receive Date: 20060515
  Receipt Date: 20060428
  Transmission Date: 20061013
  Serious: Yes (Disabling)
  Sender: FDA-Public Use
  Company Number: JP-2006-010110

PATIENT
  Age: 5 Year
  Sex: Female

DRUGS (3)
  1. FLUDARA [Suspect]
     Indication: CORD BLOOD TRANSPLANT THERAPY
     Dosage: 25 MG/M2, 1X/DAY, INTRAVENOUS
     Route: 042
     Dates: end: 20060301
  2. L-PAM(MELPHALAN) [Suspect]
     Dosage: INTRAVENOUS
     Route: 042
     Dates: end: 20060301
  3. BUSULFAN(BUSULFAN) [Suspect]
     Dosage: ORAL
     Route: 048
     Dates: end: 20060301

REACTIONS (2)
  - HISTIOCYTOSIS HAEMATOPHAGIC [None]
  - HUNTINGTON'S CHOREA [None]
